FAERS Safety Report 6210848-9 (Version None)
Quarter: 2009Q2

REPORT INFORMATION
  Report Type: 
  Country: None (occurrence: None)
  Receive Date: 20090601
  Receipt Date: 20090528
  Transmission Date: 20091009
  Serious: Yes (Life-Threatening, Hospitalization, Other)
  Sender: FDA-Public Use
  Company Number: PHEH2009US02787

PATIENT
  Sex: Male
  Weight: 100.68 kg

DRUGS (2)
  1. TASIGNA [Suspect]
     Indication: CHRONIC MYELOID LEUKAEMIA
     Dosage: 400 MG, BID
     Route: 048
     Dates: start: 20090228, end: 20090304
  2. ANAESTHETICS [Suspect]

REACTIONS (13)
  - ACUTE RESPIRATORY FAILURE [None]
  - ALANINE AMINOTRANSFERASE INCREASED [None]
  - ASPARTATE AMINOTRANSFERASE INCREASED [None]
  - ATRIAL FIBRILLATION [None]
  - DEAFNESS [None]
  - GAIT DISTURBANCE [None]
  - LIVER FUNCTION TEST ABNORMAL [None]
  - MENTAL STATUS CHANGES [None]
  - NAUSEA [None]
  - OXYGEN SATURATION DECREASED [None]
  - RENAL FAILURE [None]
  - ROTATOR CUFF REPAIR [None]
  - VOMITING [None]
